FAERS Safety Report 12884567 (Version 2)
Quarter: 2016Q4

REPORT INFORMATION
  Report Type: Spontaneous
  Country: US (occurrence: US)
  Receive Date: 20161026
  Receipt Date: 20161104
  Transmission Date: 20170207
  Serious: Yes (Disabling, Other)
  Sender: FDA-Public Use
  Company Number: ALCN2016US007255

PATIENT
  Age: 72 Year
  Sex: Female

DRUGS (1)
  1. DUREZOL [Suspect]
     Active Substance: DIFLUPREDNATE
     Dosage: 4 GTT, QD
     Route: 047
     Dates: end: 20161017

REACTIONS (5)
  - Gait disturbance [Not Recovered/Not Resolved]
  - Amnesia [Not Recovered/Not Resolved]
  - Confusional state [Not Recovered/Not Resolved]
  - Spinal cord compression [Unknown]
  - Hydrocephalus [Unknown]

NARRATIVE: CASE EVENT DATE: 201608
